FAERS Safety Report 23513415 (Version 1)
Quarter: 2024Q1

REPORT INFORMATION
  Report Type: Spontaneous
  Country: US (occurrence: US)
  Receive Date: 20240212
  Receipt Date: 20240212
  Transmission Date: 20240409
  Serious: Yes (Other)
  Sender: FDA-Public Use
  Company Number: US-PFIZER INC-202400035947

PATIENT
  Age: 72 Year
  Sex: Male
  Weight: 84.37 kg

DRUGS (1)
  1. VYNDAMAX [Suspect]
     Active Substance: TAFAMIDIS
     Indication: Cardiac amyloidosis
     Dosage: 61MG, ONCE A DAY

REACTIONS (6)
  - Foot amputation [Not Recovered/Not Resolved]
  - Brain operation [Unknown]
  - Brain injury [Not Recovered/Not Resolved]
  - Memory impairment [Not Recovered/Not Resolved]
  - Memory impairment [Recovered/Resolved]
  - Cognitive disorder [Unknown]

NARRATIVE: CASE EVENT DATE: 20200101
